FAERS Safety Report 13858003 (Version 1)
Quarter: 2017Q3

REPORT INFORMATION
  Report Type: Spontaneous
  Country: US (occurrence: US)
  Receive Date: 20170811
  Receipt Date: 20170811
  Transmission Date: 20171127
  Serious: Yes (Life-Threatening, Other)
  Sender: FDA-Public Use
  Company Number: US-WEST-WARD PHARMACEUTICALS CORP.-US-H14001-17-02961

PATIENT
  Age: 29 Year
  Sex: Female

DRUGS (6)
  1. FUROSEMIDE. [Suspect]
     Active Substance: FUROSEMIDE
     Indication: CONGESTIVE CARDIOMYOPATHY
     Route: 065
  2. METOPROLOL. [Interacting]
     Active Substance: METOPROLOL
     Indication: CONGESTIVE CARDIOMYOPATHY
     Route: 065
  3. IVABRADINE [Interacting]
     Active Substance: IVABRADINE
     Dosage: ON INITIAL DOSE
     Route: 065
  4. SPIRONOLACTONE. [Interacting]
     Active Substance: SPIRONOLACTONE
     Indication: CONGESTIVE CARDIOMYOPATHY
     Route: 065
  5. IVABRADINE [Interacting]
     Active Substance: IVABRADINE
     Indication: CONGESTIVE CARDIOMYOPATHY
     Dosage: ON INITIAL DOSE
     Route: 065
  6. LISINOPRIL. [Interacting]
     Active Substance: LISINOPRIL
     Indication: CONGESTIVE CARDIOMYOPATHY
     Route: 065

REACTIONS (4)
  - Cardio-respiratory arrest [Unknown]
  - Ventricular fibrillation [Unknown]
  - Torsade de pointes [Unknown]
  - Drug interaction [Unknown]
